FAERS Safety Report 14558791 (Version 1)
Quarter: 2018Q1

REPORT INFORMATION
  Report Type: Spontaneous
  Country: JP (occurrence: JP)
  Receive Date: 20180221
  Receipt Date: 20180221
  Transmission Date: 20180509
  Serious: Yes (Hospitalization)
  Sender: FDA-Public Use
  Company Number: JP-ABBVIE-18K-087-2262995-00

PATIENT
  Age: 3 Month

DRUGS (1)
  1. SYNAGIS [Suspect]
     Active Substance: PALIVIZUMAB
     Indication: PREMATURE BABY
     Route: 030
     Dates: start: 201709

REACTIONS (3)
  - Upper respiratory tract inflammation [Recovered/Resolved]
  - Respiratory syncytial virus infection [Unknown]
  - Feeding disorder [Recovered/Resolved]

NARRATIVE: CASE EVENT DATE: 201709
